FAERS Safety Report 18808692 (Version 1)
Quarter: 2021Q1

REPORT INFORMATION
  Report Type: Spontaneous
  Country: DE (occurrence: DE)
  Receive Date: 20210129
  Receipt Date: 20210129
  Transmission Date: 20210419
  Serious: Yes (Death)
  Sender: FDA-Public Use
  Company Number: DE-SA-2021SA027519

PATIENT
  Age: 28 Year
  Sex: Male

DRUGS (9)
  1. AMISULPRIDE [Suspect]
     Active Substance: AMISULPRIDE
  2. ALCOHOL. [Suspect]
     Active Substance: ALCOHOL
  3. CLOZAPINE. [Suspect]
     Active Substance: CLOZAPINE
  4. CAFFEINE. [Suspect]
     Active Substance: CAFFEINE
  5. AMPHETAMINE [Suspect]
     Active Substance: AMPHETAMINE
  6. DIPHENHYDRAMINE. [Suspect]
     Active Substance: DIPHENHYDRAMINE
  7. METHAMPHETAMINE [METAMFETAMINE] [Suspect]
     Active Substance: METHAMPHETAMINE
  8. CHLORPROTHIXENE [Suspect]
     Active Substance: CHLORPROTHIXENE
  9. DOXYLAMINE SUCCINATE. [Suspect]
     Active Substance: DOXYLAMINE SUCCINATE

REACTIONS (1)
  - Toxicity to various agents [Fatal]

NARRATIVE: CASE EVENT DATE: 2013
